FAERS Safety Report 6174814-4 (Version None)
Quarter: 2009Q2

REPORT INFORMATION
  Report Type: 
  Country: None (occurrence: None)
  Receive Date: 20090430
  Receipt Date: 20081118
  Transmission Date: 20091009
  Serious: No
  Sender: FDA-Public Use
  Company Number: US-ASTRAZENECA-2008UW25824

PATIENT
  Age: 63 Year
  Sex: Female
  Weight: 89.8 kg

DRUGS (6)
  1. NEXIUM [Suspect]
     Indication: GASTROOESOPHAGEAL REFLUX DISEASE
     Route: 048
     Dates: start: 20070801
  2. ZOFRAN [Concomitant]
  3. SUDAFED 12 HOUR [Concomitant]
  4. LEXAPRO [Concomitant]
  5. PREDNISONE [Concomitant]
  6. NEUROPACK [Concomitant]
     Indication: RESTLESS LEGS SYNDROME

REACTIONS (1)
  - GASTROOESOPHAGEAL REFLUX DISEASE [None]
